FAERS Safety Report 18290565 (Version 1)
Quarter: 2020Q3

REPORT INFORMATION
  Report Type: Spontaneous
  Country: CN (occurrence: CN)
  Receive Date: 20200922
  Receipt Date: 20200922
  Transmission Date: 20201103
  Serious: Yes (Other)
  Sender: FDA-Public Use
  Company Number: CN-BEH-2020121034

PATIENT
  Age: 52 Year
  Sex: Male

DRUGS (1)
  1. ALBURX [Suspect]
     Active Substance: ALBUMIN HUMAN
     Indication: HYPOPROTEINAEMIA
     Dosage: 2 DOSAGE FORM, QD (TWO VIALS A DAY)
     Route: 042
     Dates: start: 20200729, end: 20200802

REACTIONS (3)
  - Hypoproteinaemia [Recovered/Resolved]
  - Suspected counterfeit product [Recovered/Resolved]
  - Drug ineffective [Recovered/Resolved]

NARRATIVE: CASE EVENT DATE: 20200805
